FAERS Safety Report 6790502-5 (Version None)
Quarter: 2010Q2

REPORT INFORMATION
  Report Type: 
  Country: None (occurrence: None)
  Receive Date: 20100624
  Receipt Date: 20100617
  Transmission Date: 20101027
  Serious: Yes (Other)
  Sender: FDA-Public Use
  Company Number: PHHY2010JP40072

PATIENT
  Age: 80 Year
  Sex: Male

DRUGS (2)
  1. VOLTAREN [Suspect]
     Indication: BACK PAIN
     Dosage: 75 MG
     Route: 054
  2. VOLTAREN [Suspect]
     Dosage: 25 MG, BID
     Route: 054

REACTIONS (1)
  - LOSS OF CONSCIOUSNESS [None]
